FAERS Safety Report 16387278 (Version 2)
Quarter: 2019Q2

REPORT INFORMATION
  Report Type: Spontaneous
  Country: CN (occurrence: CN)
  Receive Date: 20190604
  Receipt Date: 20190604
  Transmission Date: 20190711
  Serious: Yes (Hospitalization)
  Sender: FDA-Public Use
  Company Number: PHHY2019CN126990

PATIENT
  Age: 60 Year
  Sex: Female

DRUGS (7)
  1. TIOPRONIN [Concomitant]
     Active Substance: TIOPRONIN
     Indication: PRODUCT USED FOR UNKNOWN INDICATION
     Route: 042
  2. THYMOSIN [Concomitant]
     Active Substance: THYMOSIN
     Indication: PRODUCT USED FOR UNKNOWN INDICATION
     Route: 042
  3. CICLOSPORIN [Suspect]
     Active Substance: CYCLOSPORINE
     Indication: ACUTE ON CHRONIC LIVER FAILURE
     Dosage: 75 MG/TIME, BID
     Route: 065
     Dates: end: 20160709
  4. PREDNISONE. [Suspect]
     Active Substance: PREDNISONE
     Indication: PRIMARY BILIARY CHOLANGITIS
  5. CICLOSPORIN [Suspect]
     Active Substance: CYCLOSPORINE
     Indication: PRIMARY BILIARY CHOLANGITIS
  6. PREDNISONE. [Suspect]
     Active Substance: PREDNISONE
     Indication: ACUTE ON CHRONIC LIVER FAILURE
     Dosage: 20 MG/TIME, BID
     Route: 048
     Dates: end: 20160709
  7. CYCLOPHOSPHAMIDE. [Concomitant]
     Active Substance: CYCLOPHOSPHAMIDE
     Indication: PRODUCT USED FOR UNKNOWN INDICATION
     Route: 042

REACTIONS (10)
  - Product use in unapproved indication [Unknown]
  - Pyrexia [Recovering/Resolving]
  - Hepatic failure [Recovering/Resolving]
  - Diarrhoea [Recovering/Resolving]
  - Asthenia [Recovering/Resolving]
  - Cytopenia [Recovering/Resolving]
  - Pneumocystis jirovecii infection [Recovering/Resolving]
  - Respiratory failure [Recovering/Resolving]
  - Septic shock [Recovering/Resolving]
  - Biliary cirrhosis [Recovering/Resolving]

NARRATIVE: CASE EVENT DATE: 20160916
